FAERS Safety Report 5823681-4 (Version None)
Quarter: 2008Q3

REPORT INFORMATION
  Report Type: 
  Country: None (occurrence: None)
  Receive Date: 20080725
  Receipt Date: 20080714
  Transmission Date: 20090109
  Serious: Yes (Disabling)
  Sender: FDA-Public Use
  Company Number: JP-PFIZER INC-2008047748

PATIENT
  Sex: Female

DRUGS (1)
  1. CHANTIX [Suspect]
     Indication: NICOTINE DEPENDENCE
     Dosage: DAILY DOSE:.5MG
     Route: 048
     Dates: start: 20080520, end: 20080606

REACTIONS (3)
  - HYPERPHAGIA [None]
  - OEDEMA PERIPHERAL [None]
  - WEIGHT INCREASED [None]
